FAERS Safety Report 18483689 (Version 1)
Quarter: 2020Q4

REPORT INFORMATION
  Report Type: Spontaneous
  Country: US (occurrence: US)
  Receive Date: 20201110
  Receipt Date: 20201110
  Transmission Date: 20210114
  Serious: Yes (Hospitalization)
  Sender: FDA-Public Use
  Company Number: US-MICRO LABS LIMITED-ML2020-03265

PATIENT
  Age: 14 Year
  Sex: Female
  Weight: 76 kg

DRUGS (1)
  1. VERAPAMIL HYDROCHLORIDE. [Suspect]
     Active Substance: VERAPAMIL HYDROCHLORIDE
     Dosage: 12 TABLETS OF VERAPAMIL ER

REACTIONS (7)
  - Palpitations [Recovered/Resolved]
  - Sinus bradycardia [Unknown]
  - Atrioventricular block first degree [Recovered/Resolved]
  - Atrioventricular block second degree [Unknown]
  - Intentional overdose [Unknown]
  - Tachycardia [Unknown]
  - Hypotension [Unknown]
